FAERS Safety Report 24882745 (Version 1)
Quarter: 2025Q1

REPORT INFORMATION
  Report Type: Spontaneous
  Country: US (occurrence: US)
  Receive Date: 20250124
  Receipt Date: 20250124
  Transmission Date: 20250409
  Serious: No
  Sender: ROCHE
  Company Number: US-ROCHE-10000178676

PATIENT
  Age: 23 Year
  Sex: Female
  Weight: 58.96 kg

DRUGS (10)
  1. XOLAIR [Suspect]
     Active Substance: OMALIZUMAB
     Indication: Chronic spontaneous urticaria
     Dosage: IN THE THIGH
     Route: 058
     Dates: start: 20250109
  2. XOLAIR [Suspect]
     Active Substance: OMALIZUMAB
     Indication: Chronic spontaneous urticaria
     Dosage: IN THE BACK OF THE ARM
     Route: 058
     Dates: start: 202301, end: 20241218
  3. XOLAIR [Suspect]
     Active Substance: OMALIZUMAB
  4. AMITRIPTYLINE [Concomitant]
     Active Substance: AMITRIPTYLINE
     Indication: Migraine
     Dosage: EVERY NIGHT
     Route: 048
  5. AMITRIPTYLINE [Concomitant]
     Active Substance: AMITRIPTYLINE
     Indication: Anxiety
  6. AMITRIPTYLINE [Concomitant]
     Active Substance: AMITRIPTYLINE
     Indication: Sleep disorder
  7. FLUDROCORTISONE [Concomitant]
     Active Substance: FLUDROCORTISONE
     Indication: Postural orthostatic tachycardia syndrome
     Dosage: EVERY MORNING
     Route: 048
     Dates: start: 202206
  8. DEPO-PROVERA [Concomitant]
     Active Substance: MEDROXYPROGESTERONE ACETATE
     Indication: Migraine
     Route: 030
     Dates: start: 202208
  9. NURTEC ODT [Concomitant]
     Active Substance: RIMEGEPANT SULFATE
     Indication: Migraine
     Route: 048
     Dates: start: 202208
  10. MIDODRINE [Concomitant]
     Active Substance: MIDODRINE
     Indication: Postural orthostatic tachycardia syndrome
     Route: 048
     Dates: start: 202203

REACTIONS (8)
  - Accidental underdose [Unknown]
  - Pruritus [Recovered/Resolved]
  - Hot flush [Recovered/Resolved]
  - Rash macular [Recovered/Resolved]
  - Sensitive skin [Recovered/Resolved]
  - Paraesthesia oral [Recovered/Resolved]
  - Device difficult to use [Unknown]
  - Off label use [Unknown]

NARRATIVE: CASE EVENT DATE: 20250109
